FAERS Safety Report 8343290 (Version 2)
Quarter: 2012Q4

REPORT INFORMATION
  Report Type: 
  Country: BR (occurrence: BR)
  Receive Date: 20120119
  Receipt Date: 20120919
  Transmission Date: 20130627
  Serious: Yes (Other)
  Sender: FDA-Public Use
  Company Number: BR-BAYER-2012-005817

PATIENT
  Sex: Female

DRUGS (1)
  1. MIRENA [Suspect]
     Indication: MENSTRUAL DISORDER
     Dosage: 20 mcg/24hr, CONT
     Route: 015
     Dates: start: 20090518

REACTIONS (2)
  - Device breakage [None]
  - Abdominal pain [Not Recovered/Not Resolved]
